FAERS Safety Report 8947147 (Version 1)
Quarter: 2012Q4

REPORT INFORMATION
  Report Type: Report from Study
  Country: TR (occurrence: TR)
  Receive Date: 20121205
  Receipt Date: 20121205
  Transmission Date: 20130627
  Serious: Yes (Death)
  Sender: FDA-Public Use
  Company Number: TR-ROCHE-1164211

PATIENT
  Age: 62 Year
  Sex: Female

DRUGS (1)
  1. CAPECITABINE [Suspect]
     Indication: NEOPLASM MALIGNANT
     Dosage: Dose : 500 mg 3+3 and 150 mg 2+2
     Route: 065
     Dates: start: 20120724, end: 20121101

REACTIONS (1)
  - Disease progression [Fatal]
